FAERS Safety Report 9804620 (Version 1)
Quarter: 2014Q1

REPORT INFORMATION
  Report Type: Spontaneous
  Country: US (occurrence: US)
  Receive Date: 20140108
  Receipt Date: 20140108
  Transmission Date: 20141002
  Serious: Yes (Other)
  Sender: FDA-Public Use
  Company Number: US-GLAXOSMITHKLINE-A1032441A

PATIENT
  Age: 53 Year
  Sex: Female
  Weight: 181.8 kg

DRUGS (1)
  1. AVANDIA [Suspect]
     Indication: DIABETES MELLITUS
     Dosage: 4MG UNKNOWN
     Route: 048
     Dates: start: 200607, end: 200812

REACTIONS (2)
  - Cardiac failure congestive [Unknown]
  - Malignant hypertension [Unknown]
